FAERS Safety Report 23652868 (Version 1)
Quarter: 2024Q1

REPORT INFORMATION
  Report Type: Spontaneous
  Country: CA (occurrence: None)
  Receive Date: 20240320
  Receipt Date: 20240320
  Transmission Date: 20240410
  Serious: Yes (Other)
  Sender: FDA-Public Use
  Company Number: CA-PFIZER INC-202400064970

PATIENT
  Age: 61 Year
  Sex: Female

DRUGS (6)
  1. METHOTREXATE [Suspect]
     Active Substance: METHOTREXATE
     Indication: Product used for unknown indication
     Dates: end: 202311
  2. OZEMPIC [Concomitant]
     Active Substance: SEMAGLUTIDE
  3. PREDNISONE [Concomitant]
     Active Substance: PREDNISONE
     Indication: Rheumatoid arthritis
  4. PREDNISONE [Concomitant]
     Active Substance: PREDNISONE
     Indication: Lung disorder
  5. RITUXIMAB [Concomitant]
     Active Substance: RITUXIMAB
     Indication: Rheumatoid arthritis
     Dosage: 1000 MG, EVERY 5 WEEKS
     Dates: start: 20230403
  6. RITUXIMAB [Concomitant]
     Active Substance: RITUXIMAB
     Dosage: 1000 MG, EVERY 5 WEEKS
     Dates: start: 20230905

REACTIONS (3)
  - Pneumonia [Unknown]
  - COVID-19 [Unknown]
  - Lung disorder [Unknown]

NARRATIVE: CASE EVENT DATE: 20230901
